FAERS Safety Report 9934897 (Version 5)
Quarter: 2014Q3

REPORT INFORMATION
  Report Type: Spontaneous
  Country: US (occurrence: US)
  Receive Date: 20140228
  Receipt Date: 20140718
  Transmission Date: 20150326
  Serious: Yes (Hospitalization, Other)
  Sender: FDA-Public Use
  Company Number: US-009507513-1109USA01182

PATIENT
  Sex: Female

DRUGS (3)
  1. FOSAMAX PLUS D [Suspect]
     Active Substance: ALENDRONATE SODIUM\CHOLECALCIFEROL
     Indication: OSTEOPOROSIS
     Dosage: 70 MG/2800, UNK
     Route: 048
     Dates: start: 20080630, end: 2010
  2. FOSAMAX [Suspect]
     Active Substance: ALENDRONATE SODIUM
     Indication: OSTEOPOROSIS
     Dosage: 10 MG, UNK
     Route: 048
     Dates: start: 20071015, end: 20071105
  3. FOSAMAX [Suspect]
     Active Substance: ALENDRONATE SODIUM
     Indication: OSTEOPENIA
     Dosage: 70 MG, QW
     Route: 048
     Dates: start: 2000, end: 2008

REACTIONS (12)
  - Aortic calcification [Unknown]
  - Intramedullary rod insertion [Unknown]
  - Adverse event [Unknown]
  - Femur fracture [Unknown]
  - Arthrodesis [Unknown]
  - Blood cholesterol increased [Unknown]
  - Femur fracture [Unknown]
  - Open reduction of fracture [Unknown]
  - Anaemia postoperative [Unknown]
  - Hypertension [Unknown]
  - Rheumatoid arthritis [Unknown]
  - Fall [Unknown]

NARRATIVE: CASE EVENT DATE: 2000
